FAERS Safety Report 10365839 (Version 2)
Quarter: 2014Q3

REPORT INFORMATION
  Report Type: Spontaneous
  Country: US (occurrence: US)
  Receive Date: 20140806
  Receipt Date: 20140812
  Transmission Date: 20150326
  Serious: Yes (Other)
  Sender: FDA-Public Use
  Company Number: US-LUNDBECK-DKLU1101703

PATIENT
  Age: 9 Month
  Sex: Male

DRUGS (2)
  1. SABRIL [Suspect]
     Active Substance: VIGABATRIN
     Indication: TEMPORAL LOBE EPILEPSY
     Route: 048
     Dates: start: 20140131
  2. RAPAMUNE [Suspect]
     Active Substance: SIROLIMUS
     Indication: PRODUCT USED FOR UNKNOWN INDICATION

REACTIONS (4)
  - Tic [Unknown]
  - Infantile spitting up [Unknown]
  - Drug dose omission [Unknown]
  - Infantile spasms [Unknown]

NARRATIVE: CASE EVENT DATE: 20140701
